FAERS Safety Report 8336708 (Version 8)
Quarter: 2014Q3

REPORT INFORMATION
  Report Type: Spontaneous
  Country: US (occurrence: US)
  Receive Date: 20111202
  Receipt Date: 20140813
  Transmission Date: 20150326
  Serious: Yes (Hospitalization, Other)
  Sender: FDA-Public Use
  Company Number: US-009507513-2011SP012082

PATIENT
  Sex: Female
  Weight: 63.5 kg

DRUGS (6)
  1. NUVARING [Suspect]
     Active Substance: ETHINYL ESTRADIOL\ETONOGESTREL
     Indication: CONTRACEPTION
     Route: 067
     Dates: start: 200507, end: 20100316
  2. MIDRIN [Concomitant]
     Active Substance: ACETAMINOPHEN\DICHLORALPHENAZONE\ISOMETHEPTENE
     Dosage: UNK UNK, PRN
     Dates: start: 1997
  3. LYRICA [Concomitant]
     Active Substance: PREGABALIN
     Indication: FIBROMYALGIA
     Dosage: 225 MG, BID
     Dates: start: 2009, end: 2010
  4. ALBUTEROL. [Concomitant]
     Active Substance: ALBUTEROL
     Dosage: UNK UNK, PRN
     Dates: start: 1997
  5. TRIAZOLAM. [Concomitant]
     Active Substance: TRIAZOLAM
  6. PERCOCET [Concomitant]
     Active Substance: ACETAMINOPHEN\OXYCODONE HYDROCHLORIDE
     Indication: FIBROMYALGIA
     Dosage: 10-325-4-6 X/DAY
     Dates: start: 2001, end: 2010

REACTIONS (15)
  - Laryngitis [Unknown]
  - Pelvic pain [Not Recovered/Not Resolved]
  - Headache [Unknown]
  - Substance use [Unknown]
  - Facial bones fracture [Unknown]
  - Drug abuse [Not Recovered/Not Resolved]
  - Affective disorder [Not Recovered/Not Resolved]
  - Alopecia [Not Recovered/Not Resolved]
  - Deep vein thrombosis [Unknown]
  - Road traffic accident [Unknown]
  - Cerebral haemorrhage [Unknown]
  - Upper respiratory tract infection [Unknown]
  - Post-traumatic stress disorder [Unknown]
  - Laceration [Unknown]
  - Dyspareunia [Not Recovered/Not Resolved]

NARRATIVE: CASE EVENT DATE: 200704
